FAERS Safety Report 5655788-9 (Version None)
Quarter: 2008Q1

REPORT INFORMATION
  Report Type: 
  Country: None (occurrence: None)
  Receive Date: 20080307
  Receipt Date: 20080227
  Transmission Date: 20080703
  Serious: Yes (Hospitalization)
  Sender: FDA-Public Use
  Company Number: FR-PFIZER INC-2008003736

PATIENT
  Sex: Female

DRUGS (3)
  1. ZYVOX [Suspect]
     Indication: STAPHYLOCOCCAL INFECTION
     Route: 042
     Dates: start: 20070130, end: 20070218
  2. INVANZ [Concomitant]
     Dates: start: 20070130, end: 20070216
  3. TARGOCID [Concomitant]

REACTIONS (3)
  - ANAEMIA [None]
  - THROMBOCYTOPENIA [None]
  - WHITE BLOOD CELL COUNT INCREASED [None]
